FAERS Safety Report 7389438-0 (Version None)
Quarter: 2011Q2

REPORT INFORMATION
  Report Type: 
  Country: None (occurrence: None)
  Receive Date: 20110401
  Receipt Date: 20110322
  Transmission Date: 20111010
  Serious: Yes (Other)
  Sender: FDA-Public Use
  Company Number: CL-BRISTOL-MYERS SQUIBB COMPANY-15630460

PATIENT
  Sex: Female

DRUGS (1)
  1. HYDROXYUREA [Suspect]

REACTIONS (2)
  - DRUG INEFFECTIVE [None]
  - THROMBOCYTOSIS [None]
